FAERS Safety Report 13450302 (Version 1)
Quarter: 2017Q2

REPORT INFORMATION
  Report Type: Spontaneous
  Country: NZ (occurrence: NZ)
  Receive Date: 20170417
  Receipt Date: 20170417
  Transmission Date: 20170830
  Serious: Yes (Other)
  Sender: FDA-Public Use
  Company Number: NZ-BAXTER-2017BAX016077

PATIENT
  Age: 48 Year
  Sex: Female

DRUGS (5)
  1. 0.9% SODIUM CHLORIDE(AVIVA) [Suspect]
     Active Substance: SODIUM CHLORIDE
     Indication: MEDICATION DILUTION
     Dosage: AT 11:00, RECEIVED APPROX. 5MLS OF THE COMPOUNDED DRUG BY THE TIME OF REACTION
     Route: 065
     Dates: start: 20170329, end: 20170329
  2. PACLITAXEL. [Suspect]
     Active Substance: PACLITAXEL
     Indication: PRODUCT USED FOR UNKNOWN INDICATION
     Dosage: AT 11:00, RECEIVED APPROX. 5MLS OF THE COMPOUNDED DRUG BY THE TIME OF REACTION
     Route: 065
     Dates: start: 20170329, end: 20170329
  3. CYCLIZINE [Concomitant]
     Active Substance: CYCLIZINE
     Indication: PRODUCT USED FOR UNKNOWN INDICATION
     Route: 065
  4. 0.9% SODIUM CHLORIDE(AVIVA) [Suspect]
     Active Substance: SODIUM CHLORIDE
     Dosage: DOSE RE-INTRODUCED; HALF THE RATE OVER 2 HOURS
     Route: 065
     Dates: start: 20170329
  5. PACLITAXEL. [Suspect]
     Active Substance: PACLITAXEL
     Dosage: DOSE RE-INTRODUCED, HALF THE RATE OVER 2 HOURS
     Route: 065
     Dates: start: 20170329

REACTIONS (3)
  - Erythema [Recovered/Resolved]
  - Palpitations [Recovered/Resolved]
  - Dyspnoea [Recovered/Resolved]

NARRATIVE: CASE EVENT DATE: 20170329
